FAERS Safety Report 4975480-3 (Version None)
Quarter: 2006Q2

REPORT INFORMATION
  Report Type: 
  Country: None (occurrence: None)
  Receive Date: 20060410
  Receipt Date: 20060324
  Transmission Date: 20061013
  Serious: Yes (Hospitalization)
  Sender: FDA-Public Use
  Company Number: 430004M03FRA

PATIENT
  Age: 39 Year
  Sex: Female

DRUGS (3)
  1. NOVANTRONE [Suspect]
     Indication: MULTIPLE SCLEROSIS
     Dosage: 19.44 MG, 1 IN 1 CYCLE , INTRAVENOUS
     Route: 042
     Dates: start: 20000801, end: 20001030
  2. GLATIRAMER ACETATE [Suspect]
     Indication: MULTIPLE SCLEROSIS
     Dates: start: 20000615
  3. METHYLPREDNISOLONE SODIUM SUCCINATE [Suspect]
     Indication: MULTIPLE SCLEROSIS
     Dates: start: 20000801, end: 20001030

REACTIONS (2)
  - ACUTE PROMYELOCYTIC LEUKAEMIA [None]
  - REFUSAL OF TREATMENT BY PATIENT [None]
